FAERS Safety Report 8318002-1 (Version None)
Quarter: 2012Q2

REPORT INFORMATION
  Report Type: 
  Country: None (occurrence: None)
  Receive Date: 20120427
  Receipt Date: 20120420
  Transmission Date: 20120825
  Serious: Yes (Hospitalization, Other)
  Sender: FDA-Public Use
  Company Number: US-BAYER-2012-039307

PATIENT
  Age: 82 Year
  Sex: Female
  Weight: 66 kg

DRUGS (1)
  1. NAPROXEN SODIUM [Suspect]
     Dosage: 1-2 TABLETS QD
     Route: 048
     Dates: start: 20120301, end: 20120319

REACTIONS (6)
  - GASTRIC ULCER HAEMORRHAGE [None]
  - DECREASED APPETITE [None]
  - MALAISE [None]
  - FALL [None]
  - ASTHENIA [None]
  - GASTRIC ULCER [None]
